FAERS Safety Report 15302263 (Version 1)
Quarter: 2018Q3

REPORT INFORMATION
  Report Type: Spontaneous
  Country: SG (occurrence: SG)
  Receive Date: 20180821
  Receipt Date: 20180821
  Transmission Date: 20181010
  Serious: Yes (Other)
  Sender: FDA-Public Use
  Company Number: SG-MYLANLABS-2018M1062543

PATIENT
  Age: 71 Year
  Sex: Male

DRUGS (3)
  1. FLUOROURACIL. [Suspect]
     Active Substance: FLUOROURACIL
     Indication: ADENOCARCINOMA OF APPENDIX
     Dosage: INSERTED VIA LEFT SUBCLAVIAN VEIN
     Route: 042
  2. OXALIPLATIN. [Suspect]
     Active Substance: OXALIPLATIN
     Indication: ADENOCARCINOMA OF APPENDIX
     Dosage: INSERTED VIA LEFT SUBCLAVIAN VEIN
     Route: 042
  3. FOLINIC ACID [Suspect]
     Active Substance: LEUCOVORIN
     Indication: ADENOCARCINOMA OF APPENDIX
     Dosage: INSERTED VIA LEFT SUBCLAVIAN VEIN
     Route: 042

REACTIONS (2)
  - Cranial nerve palsies multiple [Recovering/Resolving]
  - Jugular vein thrombosis [Recovering/Resolving]
